FAERS Safety Report 9089438 (Version 1)
Quarter: 2013Q1

REPORT INFORMATION
  Report Type: Spontaneous
  Country: US (occurrence: US)
  Receive Date: 20130218
  Receipt Date: 20130218
  Transmission Date: 20140127
  Serious: No
  Sender: FDA-Public Use
  Company Number: US-009507513-1302USA007845

PATIENT
  Age: 8 Year
  Sex: 0

DRUGS (1)
  1. COPPERTONE KIDS WET + CLEAR CONTINUOUS SPRAY SPF 45 [Suspect]
     Indication: PROPHYLAXIS
     Dosage: UNK, UNKNOWN
     Route: 061

REACTIONS (1)
  - Sunburn [Unknown]
